FAERS Safety Report 8691404 (Version 3)
Quarter: 2013Q1

REPORT INFORMATION
  Report Type: Spontaneous
  Country: IE (occurrence: IE)
  Receive Date: 20120730
  Receipt Date: 20130204
  Transmission Date: 20140127
  Serious: Yes (Death)
  Sender: FDA-Public Use
  Company Number: IE-MILLENNIUM PHARMACEUTICALS, INC.-2012-05049

PATIENT
  Sex: 0

DRUGS (17)
  1. VELCADE [Suspect]
     Indication: PLASMA CELL MYELOMA
     Dosage: 1.3 MG/M2, UNK
     Route: 065
     Dates: start: 20090908
  2. TRENTAL [Concomitant]
  3. VALOID                             /00014901/ [Concomitant]
  4. ASPIRIN [Concomitant]
  5. PLAVIX                             /01220701/ [Concomitant]
  6. FRUMIL [Concomitant]
  7. ARCOXIA [Concomitant]
  8. STEMETIL                           /00013301/ [Concomitant]
  9. ANXICALM                           /00017001/ [Concomitant]
     Dosage: 5 MG, UNK
  10. HYTRIN [Concomitant]
  11. ZOMETA [Concomitant]
  12. CODALAX                            /00161701/ [Concomitant]
  13. ZOPICLONE [Concomitant]
  14. ZOCOR [Concomitant]
  15. MELPHALAN [Concomitant]
  16. MOVICOL                            /01053601/ [Concomitant]
  17. PREDNISOLONE [Concomitant]

REACTIONS (1)
  - Completed suicide [Fatal]
